FAERS Safety Report 6489127-0 (Version None)
Quarter: 2009Q4

REPORT INFORMATION
  Report Type: 
  Country: None (occurrence: None)
  Receive Date: 20091123
  Receipt Date: 20090826
  Transmission Date: 20100525
  Serious: No
  Sender: FDA-Public Use
  Company Number: 8051002

PATIENT
  Sex: Male

DRUGS (1)
  1. CIMZIA [Suspect]

REACTIONS (4)
  - BACK PAIN [None]
  - INJECTION SITE PAIN [None]
  - PYREXIA [None]
  - TONSILLITIS [None]
